FAERS Safety Report 5004978-7 (Version None)
Quarter: 2006Q2

REPORT INFORMATION
  Report Type: 
  Country: None (occurrence: None)
  Receive Date: 20060517
  Receipt Date: 20060509
  Transmission Date: 20061013
  Serious: Yes (Disabling)
  Sender: FDA-Public Use
  Company Number: FI-BOEHRINGER INGELHEIM PHARMACEUTICALS, INC.-2006-SW-00221SF

PATIENT
  Sex: Male

DRUGS (3)
  1. MICARDIS TAB 40 MG [Suspect]
     Indication: HYPERTENSION
     Dates: start: 20050928, end: 20060101
  2. MICARDISPLUS TAB 40 MG + 12.5 MG [Suspect]
     Indication: HYPERTENSION
     Dosage: 40 MG TELMISARTAN + 12.5 MG HCTZ
     Dates: start: 20060101, end: 20060412
  3. CIALIS [Concomitant]
     Indication: ERECTILE DYSFUNCTION
     Dosage: 0 - 20 MG
     Dates: start: 20050928, end: 20051001

REACTIONS (4)
  - ARTHRALGIA [None]
  - DRUG EFFECT DECREASED [None]
  - JOINT RANGE OF MOTION DECREASED [None]
  - JOINT STIFFNESS [None]
